FAERS Safety Report 10051124 (Version 2)
Quarter: 2014Q2

REPORT INFORMATION
  Report Type: Spontaneous
  Country: US (occurrence: US)
  Receive Date: 20140401
  Receipt Date: 20140401
  Transmission Date: 20141212
  Serious: No
  Sender: FDA-Public Use
  Company Number: US-ASTRAZENECA-2012SE29478

PATIENT
  Age: 78 Year
  Sex: Female
  Weight: 63.5 kg

DRUGS (10)
  1. NEXIUM [Suspect]
     Indication: GASTROOESOPHAGEAL REFLUX DISEASE
     Route: 048
     Dates: start: 1998, end: 2008
  2. NEXIUM [Suspect]
     Indication: BARRETT^S OESOPHAGUS
     Route: 048
     Dates: start: 1998, end: 2008
  3. NEXIUM [Suspect]
     Indication: GASTROOESOPHAGEAL REFLUX DISEASE
     Route: 048
     Dates: start: 2008
  4. NEXIUM [Suspect]
     Indication: BARRETT^S OESOPHAGUS
     Route: 048
     Dates: start: 2008
  5. CALCIUM [Concomitant]
     Indication: HYPOVITAMINOSIS
  6. VITAMIN C [Concomitant]
     Indication: HYPOVITAMINOSIS
  7. ALUMIGAN [Concomitant]
     Indication: GLAUCOMA
  8. TIMOLOL [Concomitant]
     Indication: GLAUCOMA
  9. VENLAFAXINE [Concomitant]
     Indication: DEPRESSION
  10. RESTASIS [Concomitant]
     Indication: EYE DISORDER

REACTIONS (8)
  - Barrett^s oesophagus [Unknown]
  - Burn oesophageal [Recovered/Resolved]
  - Dyspepsia [Unknown]
  - Glaucoma [Unknown]
  - Osteopenia [Not Recovered/Not Resolved]
  - Osteoarthritis [Not Recovered/Not Resolved]
  - Body height decreased [Not Recovered/Not Resolved]
  - Drug ineffective [Unknown]
